FAERS Safety Report 8287311-7 (Version None)
Quarter: 2012Q2

REPORT INFORMATION
  Report Type: 
  Country: None (occurrence: None)
  Receive Date: 20120416
  Receipt Date: 20120416
  Transmission Date: 20120825
  Serious: Yes (Life-Threatening, Other)
  Sender: FDA-Public Use
  Company Number: None

PATIENT
  Age: 60 Year
  Sex: Female
  Weight: 61.234 kg

DRUGS (2)
  1. PHENAZOPYRIDINE HCL TAB [Concomitant]
     Dosage: TAKE 1 TABLET 3 XDAY FOR 2 DAY
     Dates: start: 20120413, end: 20120413
  2. SULFAMETHOXAZOLE AND TRIMETHOPRIM [Suspect]
     Dosage: TAKE 1 TABLET 2XDAY FOR 3 DAYS
     Dates: start: 20120413, end: 20120413

REACTIONS (6)
  - PAIN [None]
  - PAIN IN EXTREMITY [None]
  - NAUSEA [None]
  - HEADACHE [None]
  - ASTHENIA [None]
  - DYSSTASIA [None]
